FAERS Safety Report 24546978 (Version 1)
Quarter: 2024Q4

REPORT INFORMATION
  Report Type: Spontaneous
  Country: US (occurrence: US)
  Receive Date: 20241025
  Receipt Date: 20241025
  Transmission Date: 20250114
  Serious: Yes (Other)
  Sender: BRISTOL-MYERS SQUIBB COMPANY
  Company Number: US-BRISTOL-MYERS SQUIBB COMPANY-2024-167486

PATIENT
  Age: 81 Year
  Sex: Female

DRUGS (1)
  1. LENALIDOMIDE [Suspect]
     Active Substance: LENALIDOMIDE
     Indication: Non-Hodgkin^s lymphoma
     Dosage: FREQUENCY- TAKE 1 CAPSULE (15MG) BY MOUTH EVERY DAY FOR 21 DAYS THEN OFF FOR 7 DAYS
     Route: 048
     Dates: end: 20241002

REACTIONS (1)
  - Skin cancer [Recovering/Resolving]
